FAERS Safety Report 12691062 (Version 1)
Quarter: 2016Q3

REPORT INFORMATION
  Report Type: Spontaneous
  Country: DE (occurrence: DE)
  Receive Date: 20160826
  Receipt Date: 20160826
  Transmission Date: 20161109
  Serious: Yes (Other)
  Sender: FDA-Public Use
  Company Number: DE-009507513-1608DEU010256

PATIENT
  Age: 11 Year
  Sex: Male

DRUGS (6)
  1. TIMOTHY GRASS POLLEN ALLERGEN EXTRACT [Suspect]
     Active Substance: PHLEUM PRATENSE POLLEN
     Indication: ASTHMA
     Dosage: 75000 SQ-T; ORAL LYOPHILISATE; UNKNOWN
     Route: 065
     Dates: start: 20150916, end: 201509
  2. CETIRIZINE HYDROCHLORIDE. [Concomitant]
     Active Substance: CETIRIZINE HYDROCHLORIDE
  3. FLUTICASONE [Concomitant]
     Active Substance: FLUTICASONE\FLUTICASONE PROPIONATE
  4. VIANI [Concomitant]
     Active Substance: FLUTICASONE PROPIONATE\SALMETEROL XINAFOATE
  5. ALBUTEROL. [Concomitant]
     Active Substance: ALBUTEROL
  6. TIMOTHY GRASS POLLEN ALLERGEN EXTRACT [Suspect]
     Active Substance: PHLEUM PRATENSE POLLEN
     Dosage: HALF A TABLET: 37500 SQ-T; ORAL LYOPHILISATE; UNKNOWN
     Route: 065
     Dates: start: 20150921

REACTIONS (7)
  - Sneezing [Unknown]
  - Underdose [Unknown]
  - Dyspnoea [Unknown]
  - Rhinitis [Unknown]
  - Angioedema [Unknown]
  - Obstruction [Unknown]
  - Off label use [Unknown]

NARRATIVE: CASE EVENT DATE: 20150918
